FAERS Safety Report 8157846-6 (Version None)
Quarter: 2012Q1

REPORT INFORMATION
  Report Type: 
  Country: None (occurrence: None)
  Receive Date: 20120222
  Receipt Date: 20120216
  Transmission Date: 20120608
  Serious: Yes (Other)
  Sender: FDA-Public Use
  Company Number: US-PFIZER INC-2011184038

PATIENT
  Sex: Male
  Weight: 59.864 kg

DRUGS (8)
  1. TRAMADOL [Concomitant]
     Indication: PAIN
     Dosage: 50 MG, 1-2 TABLETS EVERY 6 HRS AS NEEDED
     Route: 048
  2. LYRICA [Suspect]
     Indication: FIBROMYALGIA
     Dosage: 50 MG, 2X/DAY
     Route: 048
  3. LYRICA [Suspect]
     Dosage: UNK
     Route: 048
  4. NABUMETONE [Concomitant]
     Dosage: 500 MG, 2X/DAY
  5. SULFASALAZINE [Suspect]
     Indication: ANKYLOSING SPONDYLITIS
     Dosage: 1500 MG, 2X/DAY
     Route: 048
  6. LYRICA [Suspect]
     Dosage: 150 MG, 2X/DAY
     Route: 048
  7. LYRICA [Suspect]
     Dosage: 225 MG, 2X/DAY
     Route: 048
  8. SULFASALAZINE [Suspect]
     Dosage: UNK
     Route: 048

REACTIONS (3)
  - PAIN [None]
  - ANKYLOSING SPONDYLITIS [None]
  - ABDOMINAL PAIN UPPER [None]
